FAERS Safety Report 18681096 (Version 3)
Quarter: 2021Q1

REPORT INFORMATION
  Report Type: Spontaneous
  Country: US (occurrence: US)
  Receive Date: 20201230
  Receipt Date: 20210129
  Transmission Date: 20210419
  Serious: No
  Sender: FDA-Public Use
  Company Number: US-PFIZER INC-2020496706

PATIENT
  Age: 17 Year
  Sex: Female
  Weight: 46.72 kg

DRUGS (4)
  1. GENOTROPIN [Suspect]
     Active Substance: SOMATROPIN
     Dosage: 2.6 (UNIT: UNKNOWN), ALTERNATING DAYS, 6 OUT OF 7 DAYS A WEEK
  2. GENOTROPIN [Suspect]
     Active Substance: SOMATROPIN
     Indication: GROWTH DISORDER
     Dosage: 2.4 (UNIT: UNKNOWN), EVERY OTHER DAY
  3. GENOTROPIN [Suspect]
     Active Substance: SOMATROPIN
     Dosage: 2.2 MG ON MONDAYS, WEDNESDAYS, FRIDAYS
     Dates: start: 20160815
  4. GENOTROPIN [Suspect]
     Active Substance: SOMATROPIN
     Dosage: 2.4 MG ON TUESDAYS, THURSDAYS, SUNDAYS
     Dates: start: 20160815

REACTIONS (2)
  - Drug dose omission by device [Unknown]
  - Device mechanical issue [Unknown]
